FAERS Safety Report 21891070 (Version 3)
Quarter: 2023Q4

REPORT INFORMATION
  Report Type: Spontaneous
  Country: US (occurrence: US)
  Receive Date: 20230120
  Receipt Date: 20231026
  Transmission Date: 20240110
  Serious: No
  Sender: FDA-Public Use
  Company Number: US-BRISTOL-MYERS SQUIBB COMPANY-2023-009343

PATIENT
  Age: 86 Year
  Sex: Female

DRUGS (2)
  1. ORENCIA [Suspect]
     Active Substance: ABATACEPT
     Indication: Rheumatoid arthritis
     Route: 058
     Dates: start: 202212
  2. NUCALA [Concomitant]
     Active Substance: MEPOLIZUMAB
     Indication: Product used for unknown indication

REACTIONS (7)
  - Tooth infection [Unknown]
  - Pain [Unknown]
  - Inflammation [Unknown]
  - Musculoskeletal stiffness [Unknown]
  - Pain in extremity [Recovering/Resolving]
  - Joint stiffness [Recovering/Resolving]
  - Abdominal pain [Unknown]
